FAERS Safety Report 9164129 (Version 2)
Quarter: 2013Q2

REPORT INFORMATION
  Report Type: Spontaneous
  Country: DE (occurrence: DE)
  Receive Date: 20130315
  Receipt Date: 20130422
  Transmission Date: 20140414
  Serious: Yes (Hospitalization, Other)
  Sender: FDA-Public Use
  Company Number: DE-AMGEN-DEUSP2013015186

PATIENT
  Age: 74 Year
  Sex: Female
  Weight: 70 kg

DRUGS (6)
  1. PROLIA [Suspect]
     Indication: OSTEOPOROSIS POSTMENOPAUSAL
     Dosage: 60 MG, Q6MO
     Route: 058
     Dates: start: 20110314, end: 201210
  2. FEMARA [Concomitant]
     Indication: BREAST CANCER
     Dosage: 1 TABLET, QD
     Dates: start: 200606, end: 201202
  3. FORMATRIS [Concomitant]
     Indication: CARDIAC ASTHMA
     Dosage: UNK UNK, Q6MO
     Route: 058
  4. CALCIMAGON D3 [Concomitant]
     Indication: OSTEOPOROSIS
     Dosage: 1000 MG, QD
  5. RAMIPRIL [Concomitant]
     Indication: BLOOD PRESSURE
     Dosage: 2.5 MG, QD
     Dates: start: 201207
  6. ALENDRONIC ACID [Concomitant]
     Indication: OSTEOPOROSIS
     Dosage: 1 TABLET, QD
     Dates: start: 2002, end: 20120301

REACTIONS (6)
  - Femur fracture [Recovering/Resolving]
  - Fall [Unknown]
  - Gait disturbance [Unknown]
  - Bone cyst [Unknown]
  - Bone fissure [Unknown]
  - Pain in extremity [Unknown]
